FAERS Safety Report 6526552-3 (Version None)
Quarter: 2010Q1

REPORT INFORMATION
  Report Type: 
  Country: None (occurrence: None)
  Receive Date: 20100105
  Receipt Date: 20091223
  Transmission Date: 20100710
  Serious: Yes (Other)
  Sender: FDA-Public Use
  Company Number: PHHY2009US58375

PATIENT
  Sex: Female
  Weight: 103 kg

DRUGS (1)
  1. RECLAST [Suspect]
     Indication: OSTEOPOROSIS
     Dosage: 5 MG, UNK
     Route: 042
     Dates: start: 20091117

REACTIONS (5)
  - BURNING SENSATION [None]
  - EYE IRRITATION [None]
  - HEADACHE [None]
  - OCULAR HYPERAEMIA [None]
  - PARAESTHESIA [None]
